FAERS Safety Report 6189832-X (Version None)
Quarter: 2009Q2

REPORT INFORMATION
  Report Type: 
  Country: None (occurrence: None)
  Receive Date: 20090514
  Receipt Date: 20090507
  Transmission Date: 20091009
  Serious: Yes (Other)
  Sender: FDA-Public Use
  Company Number: US-BAYER-200920313NA

PATIENT
  Age: 68 Year
  Sex: Male
  Weight: 77 kg

DRUGS (2)
  1. CIPRO [Suspect]
     Indication: PROSTATITIS
     Route: 048
     Dates: start: 20090424
  2. CYCLOBENZAPRINE HCL [Suspect]
     Indication: PAIN IN EXTREMITY
     Route: 048
     Dates: start: 20090423, end: 20090426

REACTIONS (1)
  - URINARY RETENTION [None]
